FAERS Safety Report 11982416 (Version 1)
Quarter: 2016Q1

REPORT INFORMATION
  Report Type: Spontaneous
  Country: US (occurrence: None)
  Receive Date: 20160129
  Receipt Date: 20160129
  Transmission Date: 20160526
  Serious: Yes (Disabling)
  Sender: FDA-Public Use
  Company Number: None

PATIENT
  Age: 41 Year
  Sex: Female
  Weight: 82.56 kg

DRUGS (2)
  1. RESTASIS [Concomitant]
     Active Substance: CYCLOSPORINE
  2. NEXIUM [Suspect]
     Active Substance: ESOMEPRAZOLE MAGNESIUM
     Indication: GASTROOESOPHAGEAL REFLUX DISEASE
     Dosage: 1 SUSPENSION PACKET ONCE DAILY TAKEN BY MOUTH
     Route: 048
     Dates: end: 20160119

REACTIONS (5)
  - Sensation of foreign body [None]
  - Viral infection [None]
  - Nasal inflammation [None]
  - Product formulation issue [None]
  - Cough [None]

NARRATIVE: CASE EVENT DATE: 20160107
